FAERS Safety Report 12507615 (Version 16)
Quarter: 2019Q1

REPORT INFORMATION
  Report Type: Report from Study
  Country: CA (occurrence: CA)
  Receive Date: 20160629
  Receipt Date: 20190123
  Transmission Date: 20190417
  Serious: Yes (Death, Hospitalization, Other)
  Sender: FDA-Public Use
  Company Number: PHHY2015CA098775

PATIENT
  Age: 81 Year
  Sex: Male

DRUGS (12)
  1. SANDOSTATIN [Concomitant]
     Active Substance: OCTREOTIDE ACETATE
     Indication: PRODUCT USED FOR UNKNOWN INDICATION
     Dosage: UNK UNK, PRN
     Route: 058
  2. SANDOSTATIN LAR DEPOT [Suspect]
     Active Substance: OCTREOTIDE ACETATE
     Indication: NEUROENDOCRINE CARCINOMA METASTATIC
     Dosage: 30 MG, QMO
     Route: 030
     Dates: start: 20150731
  3. SANDOSTATIN LAR DEPOT [Suspect]
     Active Substance: OCTREOTIDE ACETATE
     Dosage: UNK
     Route: 065
     Dates: start: 20181004
  4. SANDOSTATIN LAR DEPOT [Suspect]
     Active Substance: OCTREOTIDE ACETATE
     Dosage: UNK, Q2W
     Route: 065
  5. SPIRONOLACTONE. [Concomitant]
     Active Substance: SPIRONOLACTONE
     Indication: CARDIAC DISORDER
     Route: 065
  6. COVERSYL [Concomitant]
     Active Substance: PERINDOPRIL
     Indication: PRODUCT USED FOR UNKNOWN INDICATION
     Route: 065
  7. SANDOSTATIN LAR DEPOT [Suspect]
     Active Substance: OCTREOTIDE ACETATE
     Dosage: 40 MG, QMO
     Route: 030
  8. SANDOSTATIN LAR DEPOT [Suspect]
     Active Substance: OCTREOTIDE ACETATE
     Dosage: 20 MG, QMO (EVERY 4 WEEKS)
     Route: 030
  9. SANDOSTATIN LAR DEPOT [Suspect]
     Active Substance: OCTREOTIDE ACETATE
     Dosage: 30 MG, Q3W
     Route: 030
  10. LASIX [Concomitant]
     Active Substance: FUROSEMIDE
     Indication: CARDIAC DISORDER
     Route: 065
  11. CARVEDILOL. [Concomitant]
     Active Substance: CARVEDILOL
     Indication: PRODUCT USED FOR UNKNOWN INDICATION
     Route: 065
  12. SANDOSTATIN LAR DEPOT [Suspect]
     Active Substance: OCTREOTIDE ACETATE
     Dosage: 30 MG, EVERY 3 WEEKS
     Route: 030

REACTIONS (44)
  - Haemorrhage [Recovered/Resolved]
  - Cellulitis [Unknown]
  - Cardiomyopathy [Unknown]
  - Pain [Unknown]
  - Death [Fatal]
  - Loss of consciousness [Unknown]
  - Blood pressure systolic increased [Unknown]
  - Arthralgia [Recovering/Resolving]
  - Fatigue [Unknown]
  - Carcinoid crisis [Fatal]
  - Skin discolouration [Fatal]
  - Oedema peripheral [Unknown]
  - Incontinence [Unknown]
  - General physical health deterioration [Unknown]
  - Inappropriate schedule of product administration [Unknown]
  - Blood pressure increased [Fatal]
  - Dyspnoea [Fatal]
  - Muscle spasms [Unknown]
  - Joint swelling [Recovering/Resolving]
  - Abdominal pain [Unknown]
  - Dyspepsia [Unknown]
  - Dehydration [Unknown]
  - Hepatic neoplasm [Fatal]
  - Intestinal obstruction [Unknown]
  - Bowel movement irregularity [Unknown]
  - Rash [Unknown]
  - Faeces pale [Unknown]
  - Seizure [Unknown]
  - Body temperature decreased [Unknown]
  - Joint injury [Unknown]
  - Deja vu [Unknown]
  - Amnesia [Unknown]
  - Renal failure [Unknown]
  - Peripheral swelling [Unknown]
  - Urinary tract obstruction [Unknown]
  - Blood pressure diastolic decreased [Unknown]
  - Gallbladder disorder [Unknown]
  - Needle issue [Unknown]
  - Diarrhoea [Fatal]
  - Hypotension [Unknown]
  - Fall [Unknown]
  - Carcinoid tumour [Unknown]
  - Prostatomegaly [Unknown]
  - Asthenia [Unknown]

NARRATIVE: CASE EVENT DATE: 2015
